FAERS Safety Report 12428262 (Version 1)
Quarter: 2016Q2

REPORT INFORMATION
  Report Type: Spontaneous
  Country: JP (occurrence: JP)
  Receive Date: 20160602
  Receipt Date: 20160602
  Transmission Date: 20160815
  Serious: Yes (Hospitalization, Other)
  Sender: FDA-Public Use
  Company Number: PHJP1999JP010636

PATIENT
  Age: 58 Year
  Sex: Female

DRUGS (1)
  1. SANDIMMUN CAPSULE [Suspect]
     Active Substance: CYCLOSPORINE
     Indication: PRODUCT USED FOR UNKNOWN INDICATION
     Route: 065

REACTIONS (2)
  - Myalgia [Unknown]
  - Hyperthyroidism [Unknown]
